FAERS Safety Report 5758842-6 (Version None)
Quarter: 2008Q2

REPORT INFORMATION
  Report Type: 
  Country: None (occurrence: None)
  Receive Date: 20080602
  Receipt Date: 20080521
  Transmission Date: 20081010
  Serious: Yes (Death)
  Sender: FDA-Public Use
  Company Number: 2008-01519

PATIENT
  Age: 60 Year
  Sex: Male
  Weight: 56 kg

DRUGS (13)
  1. VELCADE [Suspect]
     Indication: MULTIPLE MYELOMA
     Dosage: 1.57 MG, INTRAVENOUS
     Route: 042
     Dates: start: 20080416, end: 20080426
  2. DECADRON [Suspect]
     Indication: MULTIPLE MYELOMA
     Dosage: 20 MG, IV DRIP
     Route: 041
     Dates: start: 20080416, end: 20080426
  3. SULFAMETHOXAZOLE AND TRIMETHOPRIM [Suspect]
     Indication: MULTIPLE MYELOMA
     Dosage: 0.5 DF, ORAL
     Route: 048
     Dates: start: 20070423
  4. ITRACONAZOLE [Concomitant]
  5. SIGMART (NICORANDIL) [Concomitant]
  6. LANSOPRAZOLE [Concomitant]
  7. MAGNESIUM OXIDE (MAGNESIUM OXIDE) [Concomitant]
  8. VALTREX [Concomitant]
  9. ACYCLOVIR [Concomitant]
  10. PIPERACILLIN SODIUM AND TAZOBACTAM SODIUM [Concomitant]
  11. DALACIN-P (CLINDAMYCIN PHOSPHATE) [Concomitant]
  12. RED BLOOD CELLS [Concomitant]
  13. PLATELETS [Concomitant]

REACTIONS (9)
  - ANURIA [None]
  - BLOOD CREATINE PHOSPHOKINASE INCREASED [None]
  - BRONCHOPULMONARY ASPERGILLOSIS [None]
  - DRUG INEFFECTIVE [None]
  - ELECTROCARDIOGRAM ST SEGMENT DEPRESSION [None]
  - ORAL HERPES [None]
  - PNEUMOCYSTIS JIROVECI PNEUMONIA [None]
  - PNEUMONIA CYTOMEGALOVIRAL [None]
  - SEPTIC SHOCK [None]
